FAERS Safety Report 25918626 (Version 1)
Quarter: 2025Q4

REPORT INFORMATION
  Report Type: Spontaneous
  Country: CN (occurrence: CN)
  Receive Date: 20251014
  Receipt Date: 20251014
  Transmission Date: 20260118
  Serious: Yes (Other)
  Sender: TERSERA THERAPEUTICS
  Company Number: CN-ASTRAZENECA-202510CHN007595CN

PATIENT

DRUGS (5)
  1. GOSERELIN [Suspect]
     Active Substance: GOSERELIN
     Indication: Neoplasm malignant
     Dosage: 3.600 MILLIGRAM, QD
     Route: 058
     Dates: start: 20250905, end: 20250905
  2. ZOLADEX [Suspect]
     Active Substance: GOSERELIN ACETATE
     Indication: Neoplasm malignant
     Dosage: UNK
     Route: 065
  3. ABIRATERONE ACETATE [Suspect]
     Active Substance: ABIRATERONE ACETATE
     Indication: Neoplasm malignant
     Dosage: 1.0 GRAM, QD
     Route: 048
     Dates: start: 20250906, end: 20250906
  4. IBANDRONATE SODIUM [Concomitant]
     Active Substance: IBANDRONATE SODIUM
     Indication: Neoplasm malignant
     Dosage: 4 MILLIGRAM, QD
     Route: 042
     Dates: start: 20250905, end: 20250905
  5. PREDNISONE ACETATE [Concomitant]
     Active Substance: PREDNISONE ACETATE
     Indication: Neoplasm malignant
     Dosage: 5 MILLIGRAM, BID
     Route: 048
     Dates: start: 20250905, end: 20250912

REACTIONS (1)
  - Myelosuppression [Recovering/Resolving]

NARRATIVE: CASE EVENT DATE: 20250926
